FAERS Safety Report 10100742 (Version 2)
Quarter: 2014Q2

REPORT INFORMATION
  Report Type: Spontaneous
  Country: CA (occurrence: CA)
  Receive Date: 20140423
  Receipt Date: 20140423
  Transmission Date: 20141212
  Serious: Yes (Other)
  Sender: FDA-Public Use
  Company Number: CA-009507513-1403CAN013559

PATIENT
  Age: 47 Year
  Sex: Male
  Weight: 147.39 kg

DRUGS (1)
  1. JANUMET XR [Suspect]
     Indication: DIABETES MELLITUS MANAGEMENT
     Dosage: 2 DF, QD
     Route: 048
     Dates: end: 20140401

REACTIONS (2)
  - Hyperglycaemia [Recovering/Resolving]
  - Medication residue present [Unknown]
